FAERS Safety Report 9058755 (Version 10)
Quarter: 2014Q1

REPORT INFORMATION
  Report Type: Spontaneous
  Country: US (occurrence: US)
  Receive Date: 20130204
  Receipt Date: 20140221
  Transmission Date: 20141002
  Serious: Yes (Hospitalization, Other)
  Sender: FDA-Public Use
  Company Number: US-009507513-1302USA000345

PATIENT
  Sex: Female
  Weight: 74.83 kg

DRUGS (8)
  1. FOSAMAX [Suspect]
     Indication: OSTEOPENIA
     Dosage: 70 MG, QW
     Route: 048
     Dates: start: 2004
  2. FOSAMAX [Suspect]
     Dosage: UNK
     Route: 048
     Dates: start: 2001
  3. ALENDRONATE SODIUM [Suspect]
     Indication: OSTEOPENIA
     Dosage: 70 MG, QW
     Route: 048
     Dates: start: 20080214
  4. EFFEXOR XR [Concomitant]
     Indication: ANXIETY
     Dosage: UNK
     Dates: start: 2003
  5. VENLAFAXINE HYDROCHLORIDE [Concomitant]
     Indication: ANXIETY
     Dosage: 37.5 MG, QD
     Route: 048
     Dates: start: 2003
  6. VITAMINS (UNSPECIFIED) [Concomitant]
     Dosage: UNK
     Dates: start: 1998
  7. OMEPRAZOLE [Concomitant]
     Dosage: 20 MG, QD
     Route: 048
     Dates: start: 2003
  8. ESTROGENS (UNSPECIFIED) [Concomitant]
     Dosage: UNK
     Dates: start: 1990, end: 2002

REACTIONS (17)
  - Spinal osteoarthritis [Unknown]
  - Large intestine polyp [Unknown]
  - Post procedural infection [Recovered/Resolved]
  - Osteoarthritis [Unknown]
  - Bursitis [Recovering/Resolving]
  - Arthralgia [Unknown]
  - Back pain [Not Recovered/Not Resolved]
  - Arthralgia [Not Recovered/Not Resolved]
  - Femur fracture [Unknown]
  - Intramedullary rod insertion [Recovering/Resolving]
  - Anxiety [Unknown]
  - Incision site infection [Recovered/Resolved]
  - Pelvic pain [Unknown]
  - Osteoarthritis [Unknown]
  - Arthritis [Unknown]
  - Spinal column stenosis [Unknown]
  - Cellulitis [Recovered/Resolved]
